FAERS Safety Report 21328260 (Version 3)
Quarter: 2023Q1

REPORT INFORMATION
  Report Type: Spontaneous
  Country: US (occurrence: US)
  Receive Date: 20220913
  Receipt Date: 20230127
  Transmission Date: 20230417
  Serious: Yes (Other)
  Sender: FDA-Public Use
  Company Number: US-ABBVIE-22K-163-4537424-00

PATIENT
  Age: 73 Year
  Sex: Male

DRUGS (10)
  1. CREON [Suspect]
     Active Substance: PANCRELIPASE AMYLASE\PANCRELIPASE LIPASE\PANCRELIPASE PROTEASE
     Indication: Pancreatic failure
     Dosage: TIME INTERVAL: 0.16666667 DAYS: TWO CAPSULES WITH MEAL AND TWO CAPSULES
     Route: 048
  2. CREON [Suspect]
     Active Substance: PANCRELIPASE AMYLASE\PANCRELIPASE LIPASE\PANCRELIPASE PROTEASE
     Indication: Pancreatic failure
     Dosage: ONE CAPSULE EACH MEAL
     Route: 048
     Dates: start: 202209
  3. JANUVIA [Concomitant]
     Active Substance: SITAGLIPTIN PHOSPHATE
     Indication: Blood glucose increased
  4. JANUVIA [Concomitant]
     Active Substance: SITAGLIPTIN PHOSPHATE
     Indication: Blood glucose increased
     Dosage: 25 MILLIGRAM
  5. OMEPRAZOLE [Concomitant]
     Active Substance: OMEPRAZOLE
     Indication: Helicobacter infection
     Route: 065
     Dates: end: 202209
  6. LISINOPRIL [Concomitant]
     Active Substance: LISINOPRIL
     Indication: Product used for unknown indication
     Route: 065
  7. ALLEGRA ALLERGY [Concomitant]
     Active Substance: FEXOFENADINE HYDROCHLORIDE
     Indication: Cholangitis sclerosing
     Route: 065
  8. PEPCID [Concomitant]
     Active Substance: FAMOTIDINE
     Indication: Product used for unknown indication
     Route: 065
  9. Ester c [Concomitant]
     Indication: Vitamin supplementation
     Route: 065
  10. ELIQUIS [Concomitant]
     Active Substance: APIXABAN
     Indication: Anticoagulant therapy
     Dosage: 5 MILLIGRAM

REACTIONS (21)
  - Cerebrovascular accident [Unknown]
  - Atrial fibrillation [Unknown]
  - Constipation [Unknown]
  - Hypoaesthesia [Recovered/Resolved]
  - Nasal cyst [Recovered/Resolved]
  - Unevaluable event [Recovered/Resolved]
  - Intentional product misuse [Not Recovered/Not Resolved]
  - Skin disorder [Recovered/Resolved]
  - Herpes zoster [Unknown]
  - Carotid artery occlusion [Not Recovered/Not Resolved]
  - Scratch [Recovered/Resolved]
  - Heart rate irregular [Unknown]
  - Contusion [Recovered/Resolved]
  - Dyspepsia [Unknown]
  - Cholangitis sclerosing [Not Recovered/Not Resolved]
  - Dysstasia [Recovered/Resolved]
  - Gallbladder obstruction [Unknown]
  - Cholelithiasis [Unknown]
  - Loss of control of legs [Recovered/Resolved]
  - Thrombosis [Unknown]
  - Musculoskeletal disorder [Recovered/Resolved]

NARRATIVE: CASE EVENT DATE: 20220901
